FAERS Safety Report 6308325-X (Version None)
Quarter: 2009Q3

REPORT INFORMATION
  Report Type: 
  Country: None (occurrence: None)
  Receive Date: 20090813
  Receipt Date: 20090807
  Transmission Date: 20100115
  Serious: Yes (Hospitalization)
  Sender: FDA-Public Use
  Company Number: FR-WYE-G04208809

PATIENT
  Sex: Female

DRUGS (8)
  1. EFFEXOR [Suspect]
     Indication: DEPRESSION
     Route: 048
     Dates: start: 20080101, end: 20090206
  2. DI-ANTALVIC [Concomitant]
     Indication: PAIN
     Route: 048
  3. STILNOX [Concomitant]
     Indication: INSOMNIA
     Route: 048
  4. SEGLOR [Concomitant]
     Indication: ORTHOSTATIC HYPOTENSION
     Dosage: 5 MG 2 TIMES PER DAY IF BLOOD PRESSURE DECREASED BELOW 100/60 MMHG
     Route: 048
  5. THERALENE [Suspect]
     Indication: INSOMNIA
     Route: 048
     Dates: start: 20080301, end: 20080801
  6. THERALENE [Suspect]
     Route: 048
     Dates: start: 20080801
  7. THERALENE [Suspect]
     Route: 048
     Dates: end: 20090206
  8. VALIUM [Concomitant]
     Indication: DELIRIUM TREMENS
     Route: 048

REACTIONS (4)
  - ASPIRATION [None]
  - DYSKINESIA [None]
  - DYSPHAGIA [None]
  - EXTRAPYRAMIDAL DISORDER [None]
